FAERS Safety Report 25821691 (Version 1)
Quarter: 2025Q3

REPORT INFORMATION
  Report Type: Report from Study
  Country: US (occurrence: US)
  Receive Date: 20250919
  Receipt Date: 20250919
  Transmission Date: 20251021
  Serious: Yes (Hospitalization, Other)
  Sender: ALEXION PHARMACEUTICALS
  Company Number: US-AstraZeneca-CH-00932031A

PATIENT
  Age: 77 Year
  Sex: Female
  Weight: 76.735 kg

DRUGS (7)
  1. TEZEPELUMAB [Suspect]
     Active Substance: TEZEPELUMAB
     Indication: Asthma
  2. TEZEPELUMAB [Suspect]
     Active Substance: TEZEPELUMAB
  3. FASENRA [Suspect]
     Active Substance: BENRALIZUMAB
     Dosage: UNK, Q8W
     Route: 065
  4. LISINOPRIL [Concomitant]
     Active Substance: LISINOPRIL
     Route: 065
  5. PEPCID [Concomitant]
     Active Substance: FAMOTIDINE
     Route: 065
  6. VENTOLIN [Concomitant]
     Active Substance: ALBUTEROL SULFATE
     Route: 065
  7. WIXELA INHUB [Concomitant]
     Active Substance: FLUTICASONE PROPIONATE\SALMETEROL XINAFOATE

REACTIONS (19)
  - Wheezing [Recovering/Resolving]
  - Syncope [Unknown]
  - Colitis [Unknown]
  - Chronic obstructive pulmonary disease [Recovering/Resolving]
  - Asthma [Recovering/Resolving]
  - Nasal congestion [Recovering/Resolving]
  - Dyspnoea [Recovering/Resolving]
  - Productive cough [Recovering/Resolving]
  - Weight increased [Unknown]
  - Nausea [Unknown]
  - Sinusitis [Recovered/Resolved]
  - Vomiting [Unknown]
  - Urinary tract infection [Unknown]
  - Diarrhoea [Unknown]
  - Blood pressure decreased [Unknown]
  - Ecchymosis [Unknown]
  - Dry mouth [Recovering/Resolving]
  - Gastrooesophageal reflux disease [Recovering/Resolving]
  - Arthritis [Recovering/Resolving]

NARRATIVE: CASE EVENT DATE: 20250601
